FAERS Safety Report 19059035 (Version 1)
Quarter: 2021Q1

REPORT INFORMATION
  Report Type: Spontaneous
  Country: DE (occurrence: DE)
  Receive Date: 20210325
  Receipt Date: 20210325
  Transmission Date: 20210420
  Serious: Yes (Hospitalization)
  Sender: FDA-Public Use
  Company Number: DE-TEVA-2021-DE-1893422

PATIENT
  Age: 63 Year
  Sex: Male
  Weight: 65 kg

DRUGS (6)
  1. RAMIPRIL. [Suspect]
     Active Substance: RAMIPRIL
     Dosage: 1 DOSAGE FORMS DAILY; 5 MG, 0.5?0?0.5?0
  2. ACETYLSALICYLSAEURE [Concomitant]
     Active Substance: ASPIRIN
     Dosage: 100 MILLIGRAM DAILY; 100 MG, 0?1?0?0
  3. METOPROLOL. [Concomitant]
     Active Substance: METOPROLOL
     Dosage: 47.5 MILLIGRAM DAILY; 47.5 MG, 1?0?0?0
  4. LEVETIRACETAM. [Concomitant]
     Active Substance: LEVETIRACETAM
     Dosage: 1000 MILLIGRAM DAILY; 500 MG, 1?0?1?0
  5. ATORVASTATIN [Concomitant]
     Active Substance: ATORVASTATIN
     Dosage: 80 MILLIGRAM DAILY; 80 MG, 0?0?0?1
  6. IBUPROFEN. [Suspect]
     Active Substance: IBUPROFEN
     Dosage: 1200 MILLIGRAM DAILY;

REACTIONS (6)
  - Tachycardia [Unknown]
  - Dehydration [Unknown]
  - Condition aggravated [Unknown]
  - General physical health deterioration [Unknown]
  - Renal failure [Unknown]
  - Urinary tract obstruction [Unknown]
